FAERS Safety Report 24309794 (Version 1)
Quarter: 2024Q3

REPORT INFORMATION
  Report Type: Spontaneous
  Country: JP (occurrence: JP)
  Receive Date: 20240912
  Receipt Date: 20240912
  Transmission Date: 20241017
  Serious: Yes (Other)
  Sender: BRISTOL MYERS SQUIBB
  Company Number: JP-BRISTOL-MYERS SQUIBB COMPANY-2024-143054

PATIENT
  Age: 49 Year
  Sex: Female

DRUGS (1)
  1. TRIAMCINOLONE ACETONIDE [Suspect]
     Active Substance: TRIAMCINOLONE ACETONIDE
     Indication: Epicondylitis
     Dosage: OVER THE COURSE OF TWO AND A HALF YEARS, SHE HAD RECEIVED A TOTAL OF 11 LOCAL INJECTIONS OF 12 MG OF
     Route: 050

REACTIONS (1)
  - Ligament injury [Recovered/Resolved]
